FAERS Safety Report 8596440-X (Version None)
Quarter: 2012Q3

REPORT INFORMATION
  Report Type: 
  Country: None (occurrence: None)
  Receive Date: 20120815
  Receipt Date: 20120809
  Transmission Date: 20120928
  Serious: Yes (Other)
  Sender: FDA-Public Use
  Company Number: US-PFIZER INC-2012194876

PATIENT
  Age: 45 Year
  Sex: Female
  Weight: 90.7 kg

DRUGS (6)
  1. GABAPENTIN [Suspect]
     Indication: HEADACHE
     Dosage: 100 MG, UNK
     Route: 048
     Dates: start: 20120717, end: 20120804
  2. CAT'S CLAW [Concomitant]
     Dosage: UNK
  3. OXYCODONE [Concomitant]
     Dosage: UNK
  4. GABAPENTIN [Suspect]
     Indication: BACK PAIN
  5. IBUPROFEN [Suspect]
     Indication: HEADACHE
     Dosage: 800 MG, AS NEEDED
     Dates: start: 19980101, end: 20120805
  6. FLONASE [Concomitant]
     Dosage: UNK

REACTIONS (13)
  - CHEST DISCOMFORT [None]
  - OEDEMA PERIPHERAL [None]
  - INSOMNIA [None]
  - CHEST PAIN [None]
  - PHARYNGEAL OEDEMA [None]
  - FLUID RETENTION [None]
  - SWOLLEN TONGUE [None]
  - DYSPNOEA [None]
  - TINNITUS [None]
  - HEADACHE [None]
  - HYPERSENSITIVITY [None]
  - SINUS HEADACHE [None]
  - BACK PAIN [None]
